FAERS Safety Report 7494490-8 (Version None)
Quarter: 2011Q2

REPORT INFORMATION
  Report Type: 
  Country: None (occurrence: None)
  Receive Date: 20110520
  Receipt Date: 20101206
  Transmission Date: 20111010
  Serious: Yes (Hospitalization, Other)
  Sender: FDA-Public Use
  Company Number: JP-PFIZER INC-2010172845

PATIENT
  Age: 65 Year
  Sex: Female
  Weight: 46 kg

DRUGS (32)
  1. DECADRON #1 [Concomitant]
     Dosage: 6.6 MG, UNK
     Route: 041
     Dates: start: 20100713, end: 20101116
  2. AMOXAN [Concomitant]
     Dosage: 25 MG, UNK
     Route: 048
  3. CLONAZEPAM [Concomitant]
     Dosage: 0.5 MG, UNK
     Route: 048
  4. FLUOROURACIL [Suspect]
     Indication: COLON CANCER
     Dosage: 400 MG/M2
     Route: 040
     Dates: start: 20100406, end: 20101116
  5. NAUZELIN [Concomitant]
     Dosage: UNK
     Route: 054
     Dates: end: 20101116
  6. OXINORM [Concomitant]
     Route: 048
  7. HACHIAZULE [Concomitant]
     Route: 002
  8. ZITHROMAX [Concomitant]
     Indication: PYREXIA
     Dosage: 500 MG, UNK
     Route: 048
     Dates: start: 20101204, end: 20101206
  9. PRIMPERAN TAB [Concomitant]
     Dosage: 10 MG, UNK
     Route: 042
     Dates: start: 20101206, end: 20101206
  10. EMEND [Concomitant]
     Dosage: 125-80 MG
     Route: 048
     Dates: start: 20100406, end: 20101118
  11. ZOLPIDEM [Concomitant]
     Indication: INSOMNIA
     Dosage: 10 MG, UNK
     Route: 048
     Dates: end: 20101205
  12. DEPAS [Concomitant]
     Indication: INSOMNIA
     Dosage: 0.5 MG, UNK
     Route: 048
  13. PRIMPERAN TAB [Concomitant]
     Dosage: UNK
     Route: 048
     Dates: start: 20101207
  14. GRAN [Concomitant]
     Indication: HAEMATOTOXICITY
     Dosage: UNK
     Route: 058
     Dates: start: 20100525, end: 20100525
  15. LEUCOVORIN CALCIUM [Suspect]
     Indication: COLON CANCER
     Dosage: 200 MG/M2, UNK
     Route: 041
     Dates: start: 20100406, end: 20101116
  16. DECADRON #1 [Concomitant]
     Indication: PREMEDICATION
     Dosage: 8 MG, UNK
     Route: 041
     Dates: start: 20100406, end: 20100629
  17. MARZULENE S [Concomitant]
     Dosage: 0.67 G, 3X/DAY
     Route: 048
  18. OXYCONTIN [Concomitant]
     Dosage: 40 MG, 2X/DAY
     Route: 048
  19. LEVOFLOXACIN [Concomitant]
     Indication: PYREXIA
     Dosage: 500 MG, UNK
     Route: 048
     Dates: start: 20101128, end: 20101206
  20. AMOBAN [Concomitant]
     Dosage: UNK
     Route: 048
     Dates: start: 20101210
  21. LECICARBON [Concomitant]
     Route: 054
  22. CAMPTOSAR [Suspect]
     Indication: COLON CANCER
     Dosage: 180 MG/M2, UNK
     Route: 041
     Dates: start: 20100406, end: 20101116
  23. FLUOROURACIL [Suspect]
     Dosage: 2400 MG/M2/D1-2
     Route: 041
     Dates: start: 20100406, end: 20101116
  24. AVASTIN [Suspect]
     Indication: COLON CANCER
     Dosage: 5 MG/KG, UNK
     Route: 041
     Dates: start: 20100406, end: 20101116
  25. KYTRIL [Concomitant]
     Indication: PREMEDICATION
     Dosage: 3 MG, UNK
     Route: 041
     Dates: start: 20100406, end: 20101116
  26. DECADRON #1 [Concomitant]
     Dosage: 4 MG, UNK
     Route: 048
     Dates: start: 20100407, end: 20101118
  27. NAUZELIN [Concomitant]
     Dosage: 30 MG, UNK
     Route: 048
     Dates: end: 20101130
  28. FAMOTIDINE [Concomitant]
     Dosage: 20 MG, 2X/DAY
     Route: 048
  29. ATROPINE [Concomitant]
     Indication: PREMEDICATION
     Dosage: 0.5 MG, UNK
     Route: 041
     Dates: start: 20100406, end: 20101116
  30. GASCON [Concomitant]
     Dosage: 40 MG, 3X/DAY
     Route: 048
  31. MAGNESIUM OXIDE [Concomitant]
     Dosage: 500 MG, 3X/DAY
     Route: 048
  32. LOXONIN [Concomitant]
     Route: 048

REACTIONS (2)
  - HAEMOGLOBIN DECREASED [None]
  - PNEUMONIA [None]
